FAERS Safety Report 5144052-2 (Version None)
Quarter: 2006Q4

REPORT INFORMATION
  Report Type: 
  Country: None (occurrence: None)
  Receive Date: 20061106
  Receipt Date: 20051020
  Transmission Date: 20070319
  Serious: Yes (Other)
  Sender: FDA-Public Use
  Company Number: US-GLAXOSMITHKLINE-A0579020A

PATIENT
  Age: 16 Year
  Sex: Female

DRUGS (6)
  1. PAXIL CR [Suspect]
     Indication: ANXIETY
     Dosage: 25MG PER DAY
     Route: 048
     Dates: start: 20021022, end: 20030502
  2. FLONASE [Concomitant]
  3. CLARITIN [Concomitant]
  4. KLONOPIN [Concomitant]
  5. DEPO-PROVERA [Concomitant]
  6. BUSPAR [Concomitant]
     Dosage: 5MG THREE TIMES PER DAY

REACTIONS (4)
  - DEPRESSED MOOD [None]
  - INSOMNIA [None]
  - NEGATIVE THOUGHTS [None]
  - SUICIDE ATTEMPT [None]
